FAERS Safety Report 8293128-X (Version None)
Quarter: 2012Q2

REPORT INFORMATION
  Report Type: 
  Country: None (occurrence: None)
  Receive Date: 20120417
  Receipt Date: 20120221
  Transmission Date: 20120825
  Serious: No
  Sender: FDA-Public Use
  Company Number: US-ASTRAZENECA-2012SE12023

PATIENT
  Sex: Female

DRUGS (3)
  1. METHOTREXATE [Interacting]
     Dosage: UNKNOWN, ONCE A WEEK
     Route: 065
  2. MUCINEX [Concomitant]
  3. NEXIUM [Suspect]
     Indication: GASTROOESOPHAGEAL REFLUX DISEASE
     Route: 048

REACTIONS (2)
  - NASOPHARYNGITIS [None]
  - LABELLED DRUG-DRUG INTERACTION MEDICATION ERROR [None]
